FAERS Safety Report 8050963-0 (Version None)
Quarter: 2012Q1

REPORT INFORMATION
  Report Type: 
  Country: None (occurrence: None)
  Receive Date: 20120117
  Receipt Date: 20120110
  Transmission Date: 20120608
  Serious: Yes (Hospitalization)
  Sender: FDA-Public Use
  Company Number: PHHY2011DE103376

PATIENT
  Sex: Female
  Weight: 90 kg

DRUGS (3)
  1. EXFORGE HCT [Suspect]
     Dosage: 1 DF, QD (160 MG VALS, 10 MG AMLO AND 12.5 MG HYD)
     Route: 048
  2. EXFORGE [Interacting]
  3. ALLOPURINOL [Interacting]
     Indication: HYPERURICAEMIA
     Dosage: 0.5 DF(300 MG), QD IN MORNING
     Route: 048

REACTIONS (5)
  - RENAL DISORDER [None]
  - HAEMATURIA [None]
  - DRUG INTERACTION [None]
  - FLANK PAIN [None]
  - ABDOMINAL PAIN [None]
